FAERS Safety Report 24254859 (Version 1)
Quarter: 2024Q3

REPORT INFORMATION
  Report Type: Spontaneous
  Country: US (occurrence: None)
  Receive Date: 20240826
  Receipt Date: 20240826
  Transmission Date: 20241017
  Serious: Yes (Death)
  Sender: Public
  Company Number: None

PATIENT
  Age: 39 Year
  Sex: Female

DRUGS (7)
  1. DIMETHYL FUMARATE [Suspect]
     Active Substance: DIMETHYL FUMARATE
     Indication: Multiple sclerosis
     Dosage: FREQUENCY : TWICE A DAY;?
     Route: 048
     Dates: start: 20230714, end: 20240726
  2. BACLOFEN [Concomitant]
     Active Substance: BACLOFEN
     Dosage: 240 MG TWICE A DAY ORAL
     Dates: start: 20230421, end: 20240726
  3. LORAZEPAM [Concomitant]
     Active Substance: LORAZEPAM
     Dates: start: 20240723, end: 20240726
  4. MORPHINE 100MG/5ML [Concomitant]
     Dates: start: 20240723, end: 20240723
  5. ASPIRIN [Concomitant]
     Active Substance: ASPIRIN
  6. VITAMINS [Concomitant]
     Active Substance: VITAMINS
  7. PROCHLORPERAZINE 10MG [Concomitant]
     Dates: start: 20240725, end: 20240726

REACTIONS (1)
  - Hepatic cancer [None]

NARRATIVE: CASE EVENT DATE: 20240726
